FAERS Safety Report 14415759 (Version 1)
Quarter: 2018Q1

REPORT INFORMATION
  Report Type: Spontaneous
  Country: FR (occurrence: FR)
  Receive Date: 20180122
  Receipt Date: 20180122
  Transmission Date: 20180509
  Serious: Yes (Hospitalization)
  Sender: FDA-Public Use
  Company Number: FR-MERCK KGAA-2040454

PATIENT
  Age: 66 Year
  Sex: Female

DRUGS (7)
  1. LANZOR [Concomitant]
     Active Substance: LANSOPRAZOLE
  2. KARDEGIC [Concomitant]
     Active Substance: ASPIRIN DL-LYSINE
  3. DEROXAT [Concomitant]
     Active Substance: PAROXETINE HYDROCHLORIDE
  4. NOVOTHYROX [Suspect]
     Active Substance: LEVOTHYROXINE SODIUM
     Indication: PRODUCT USED FOR UNKNOWN INDICATION
     Route: 048
     Dates: start: 201704, end: 201711
  5. EXFORGE(DIOVAN AMLO) [Concomitant]
  6. LODOZ (BISELECT/01166101/) [Concomitant]
  7. NORDAZ [Concomitant]
     Active Substance: NORDAZEPAM

REACTIONS (8)
  - Product formulation issue [Recovered/Resolved]
  - Headache [Recovering/Resolving]
  - Myalgia [Recovering/Resolving]
  - Asthenia [Recovering/Resolving]
  - Alopecia [Recovering/Resolving]
  - Blood thyroid stimulating hormone [Recovering/Resolving]
  - Hyperhidrosis [Recovering/Resolving]
  - Feeling jittery [Recovering/Resolving]

NARRATIVE: CASE EVENT DATE: 201704
